FAERS Safety Report 5370515-0 (Version None)
Quarter: 2007Q2

REPORT INFORMATION
  Report Type: 
  Country: None (occurrence: None)
  Receive Date: 20070625
  Receipt Date: 20070625
  Transmission Date: 20071010
  Serious: Yes (Other)
  Sender: FDA-Public Use
  Company Number: None

PATIENT
  Age: 74 Year
  Sex: Male
  Weight: 78.0187 kg

DRUGS (1)
  1. FLUTAMIDE [Suspect]
     Indication: PROSTATE CANCER METASTATIC
     Dosage: 2 CAPS 3 TIMES/DAY
     Dates: start: 20060101, end: 20070625

REACTIONS (7)
  - ANXIETY [None]
  - CONFUSIONAL STATE [None]
  - DEPRESSION [None]
  - DISTURBANCE IN ATTENTION [None]
  - IMPAIRED DRIVING ABILITY [None]
  - SOMNOLENCE [None]
  - WEIGHT INCREASED [None]
